FAERS Safety Report 8220727-3 (Version None)
Quarter: 2012Q1

REPORT INFORMATION
  Report Type: 
  Country: None (occurrence: None)
  Receive Date: 20120320
  Receipt Date: 20120307
  Transmission Date: 20120608
  Serious: Yes (Other)
  Sender: FDA-Public Use
  Company Number: US-JNJFOC-20120304914

PATIENT
  Sex: Female

DRUGS (2)
  1. PEPCID AC [Suspect]
     Indication: GASTROOESOPHAGEAL REFLUX DISEASE
     Dosage: AS NEEDED 1 TO 2X A WEEK
     Route: 048
     Dates: end: 20120306
  2. PEPCID AC [Suspect]
     Route: 048

REACTIONS (4)
  - SWOLLEN TONGUE [None]
  - LIP SWELLING [None]
  - PHARYNGEAL OEDEMA [None]
  - DYSPNOEA [None]
